FAERS Safety Report 9590437 (Version 1)
Quarter: 2013Q4

REPORT INFORMATION
  Report Type: Spontaneous
  Country: US (occurrence: US)
  Receive Date: 20131003
  Receipt Date: 20131003
  Transmission Date: 20140711
  Serious: No
  Sender: FDA-Public Use
  Company Number: US-AMGEN-USASP2012077526

PATIENT
  Age: 40 Year
  Sex: Female

DRUGS (12)
  1. ENBREL [Suspect]
     Indication: PSORIATIC ARTHROPATHY
     Dosage: 50 MG, QWK
     Route: 058
     Dates: start: 20100825
  2. HUMIRA [Concomitant]
     Dosage: UNK
  3. XANAX [Concomitant]
     Dosage: 0.25 MG, UNK
  4. SOMA [Concomitant]
     Dosage: 250 MG, UNK
  5. ZYRTEC [Concomitant]
     Dosage: 10 MG, UNK
  6. NADOLOL [Concomitant]
     Dosage: 40 MG, UNK
  7. NEXIUM                             /01479302/ [Concomitant]
     Dosage: 40 MG, UNK
  8. LEXAPRO [Concomitant]
     Dosage: 20 MG, UNK
  9. TRAZODONE [Concomitant]
     Dosage: 150 MG, UNK
  10. VITAMIN D                          /00107901/ [Concomitant]
     Dosage: 1000 UNIT, UNK
  11. PERCOCET                           /00446701/ [Concomitant]
     Dosage: 5-325 MG
  12. CALCIUM [Concomitant]
     Dosage: 500 UNK, UNK

REACTIONS (5)
  - Injection site rash [Recovered/Resolved]
  - Injection site pruritus [Recovered/Resolved]
  - Injection site urticaria [Recovered/Resolved]
  - Pain in extremity [Not Recovered/Not Resolved]
  - Injection site reaction [Recovered/Resolved]
